FAERS Safety Report 10383257 (Version 3)
Quarter: 2015Q4

REPORT INFORMATION
  Report Type: Spontaneous
  Country: US (occurrence: US)
  Receive Date: 20140814
  Receipt Date: 20151123
  Transmission Date: 20160304
  Serious: Yes (Other)
  Sender: FDA-Public Use
  Company Number: US-JNJCP-30000235063

PATIENT
  Age: 73 Year
  Sex: Female

DRUGS (2)
  1. SHOWER TO SHOWER TALCUM PRODUCT [Suspect]
     Active Substance: TALC
     Route: 061
     Dates: start: 195506, end: 201311
  2. JOHNSON^S POWDER [Suspect]
     Active Substance: TALC
     Route: 061
     Dates: start: 195506, end: 201311

REACTIONS (2)
  - Ovarian cancer stage III [Unknown]
  - Ovarian cancer [Unknown]

NARRATIVE: CASE EVENT DATE: 20130214
